FAERS Safety Report 9887638 (Version 1)
Quarter: 2013Q4

REPORT INFORMATION
  Report Type: Spontaneous
  Country: US (occurrence: None)
  Receive Date: 20131223
  Receipt Date: 20131223
  Transmission Date: 20140711
  Serious: Yes (Other)
  Sender: FDA-Public Use
  Company Number: 217317

PATIENT
  Age: 52 Year
  Sex: Male

DRUGS (3)
  1. PICATO [Suspect]
     Indication: ACTINIC KERATOSIS
     Dosage: 1 IN 1 D
     Route: 061
     Dates: start: 20120421, end: 20120422
  2. 6-MERCAPTOPURINE (MERCAPTOPURINE) [Concomitant]
  3. CYCLOSPORINE (CICLOSPORIN) [Concomitant]

REACTIONS (5)
  - Pyrexia [None]
  - Otorrhoea [None]
  - Lymphadenopathy [None]
  - Swelling face [None]
  - Herpes zoster [None]
